FAERS Safety Report 19494855 (Version 1)
Quarter: 2021Q3

REPORT INFORMATION
  Report Type: Spontaneous
  Country: DE (occurrence: DE)
  Receive Date: 20210705
  Receipt Date: 20210705
  Transmission Date: 20211014
  Serious: Yes (Other)
  Sender: FDA-Public Use
  Company Number: DE-SA-2021SA211454

PATIENT
  Age: 64 Year
  Sex: Female

DRUGS (3)
  1. DICLOFENAC COLESTYRAMINE [Suspect]
     Active Substance: CHOLESTYRAMINE\DICLOFENAC
     Indication: RHEUMATOID ARTHRITIS
     Dosage: 75 MG
  2. LEFLUNOMIDE. [Suspect]
     Active Substance: LEFLUNOMIDE
     Indication: ANTI-CYCLIC CITRULLINATED PEPTIDE ANTIBODY POSITIVE
  3. LEFLUNOMIDE. [Suspect]
     Active Substance: LEFLUNOMIDE
     Indication: RHEUMATOID ARTHRITIS
     Dosage: 20 MG

REACTIONS (7)
  - Anaemia [Unknown]
  - Eosinophilia [Unknown]
  - Diaphragm muscle weakness [Unknown]
  - Haematochezia [Unknown]
  - Diarrhoea [Unknown]
  - Colitis [Unknown]
  - Abdominal pain [Unknown]
